FAERS Safety Report 4677500-2 (Version None)
Quarter: 2005Q2

REPORT INFORMATION
  Report Type: 
  Country: None (occurrence: None)
  Receive Date: 20050526
  Receipt Date: 20050526
  Transmission Date: 20051028
  Serious: No
  Sender: FDA-Public Use
  Company Number: None

PATIENT
  Age: 63 Year
  Sex: Male

DRUGS (1)
  1. SALSALATE 750MG  PLIVA [Suspect]
     Indication: ARTHRITIS
     Dosage: 2 PO Q 12 H
     Route: 048
     Dates: start: 20040413

REACTIONS (1)
  - BLOOD CREATININE INCREASED [None]
